FAERS Safety Report 7033242-X (Version None)
Quarter: 2010Q4

REPORT INFORMATION
  Report Type: 
  Country: None (occurrence: None)
  Receive Date: 20101004
  Receipt Date: 20100922
  Transmission Date: 20110411
  Serious: Yes (Hospitalization, Other)
  Sender: FDA-Public Use
  Company Number: 013717

PATIENT
  Sex: Male
  Weight: 84 kg

DRUGS (6)
  1. LACOSAMIDE [Suspect]
     Indication: CONVULSION
     Dosage: 200 MG BID ORAL
     Route: 048
     Dates: start: 20100121
  2. RUFINAMIDE [Concomitant]
  3. TOPAMAX [Concomitant]
  4. CARBATROL [Concomitant]
  5. CELEXA [Concomitant]
  6. KEPPRA [Concomitant]

REACTIONS (4)
  - AMMONIA INCREASED [None]
  - CONDITION AGGRAVATED [None]
  - CONVULSION [None]
  - FALL [None]
